FAERS Safety Report 10072072 (Version 4)
Quarter: 2014Q2

REPORT INFORMATION
  Report Type: Spontaneous
  Country: IT (occurrence: None)
  Receive Date: 20140409
  Receipt Date: 20140604
  Transmission Date: 20141212
  Serious: Yes (Life-Threatening, Hospitalization, Other)
  Sender: FDA-Public Use
  Company Number: AUR-APL-2014-04208

PATIENT
  Age: 64 Year
  Sex: Male
  Weight: 110 kg

DRUGS (8)
  1. RAMIPRIL [Suspect]
     Indication: MYOCARDIAL ISCHAEMIA
     Dates: start: 20130701, end: 20140206
  2. METFORMIN [Suspect]
     Indication: DIABETES MELLITUS
     Route: 048
     Dates: start: 20130110, end: 20140206
  3. COMPETACT [Suspect]
     Indication: DIABETES MELLITUS
     Route: 048
     Dates: start: 20130701, end: 20140206
  4. FUROSEMIDE [Suspect]
     Indication: MYOCARDIAL ISCHAEMIA
     Route: 048
     Dates: start: 20130701, end: 20140206
  5. DILATREND [Concomitant]
  6. CARDIOASPIRIN (ACETYLSALICYLIC ACID) [Concomitant]
  7. LEVEMIR (INSULIN DETEMIR) [Concomitant]
  8. SIMVASTATIN (SIMVASTATIN) [Concomitant]

REACTIONS (5)
  - Dialysis [None]
  - Myocardial ischaemia [None]
  - Lactic acidosis [None]
  - Renal failure acute [None]
  - Drug interaction [None]
